FAERS Safety Report 7789991-9 (Version None)
Quarter: 2011Q3

REPORT INFORMATION
  Report Type: 
  Country: None (occurrence: None)
  Receive Date: 20110930
  Receipt Date: 20110620
  Transmission Date: 20111222
  Serious: Yes (Other)
  Sender: FDA-Public Use
  Company Number: US-ASTRAZENECA-2010SE43061

PATIENT
  Age: 60 Year
  Sex: Female

DRUGS (4)
  1. MINERAL TAB [Concomitant]
  2. VITAMIN TAB [Concomitant]
  3. ARIMIDEX [Suspect]
     Route: 048
  4. HERBS [Concomitant]

REACTIONS (4)
  - HOT FLUSH [None]
  - BREAST CANCER [None]
  - MUSCULOSKELETAL STIFFNESS [None]
  - MOOD SWINGS [None]
